FAERS Safety Report 8226364-9 (Version None)
Quarter: 2012Q1

REPORT INFORMATION
  Report Type: 
  Country: None (occurrence: None)
  Receive Date: 20120321
  Receipt Date: 20120312
  Transmission Date: 20120608
  Serious: Yes (Hospitalization)
  Sender: FDA-Public Use
  Company Number: US-ASTRAZENECA-2011SE45717

PATIENT
  Age: 51 Year
  Sex: Female
  Weight: 107.5 kg

DRUGS (14)
  1. XANAX [Concomitant]
     Route: 048
  2. SEROQUEL [Suspect]
     Route: 048
  3. SEROQUEL [Suspect]
     Indication: SLEEP DISORDER
     Route: 048
  4. SEROQUEL [Suspect]
     Route: 048
  5. SEROQUEL [Suspect]
     Route: 048
  6. ANTIDEPRESSANT [Concomitant]
  7. SEROQUEL [Suspect]
     Indication: DEPRESSION
     Route: 048
  8. SEROQUEL [Suspect]
     Route: 048
  9. SEROQUEL [Suspect]
     Route: 048
  10. SEROQUEL [Suspect]
     Indication: BIPOLAR DISORDER
     Route: 048
  11. SEROQUEL [Suspect]
     Indication: BORDERLINE PERSONALITY DISORDER
     Route: 048
  12. SEROQUEL [Suspect]
     Route: 048
  13. SEROQUEL [Suspect]
     Route: 048
  14. SEROQUEL [Suspect]
     Route: 048

REACTIONS (13)
  - ANXIETY [None]
  - FATIGUE [None]
  - MALAISE [None]
  - DRUG DOSE OMISSION [None]
  - DRUG INEFFECTIVE FOR UNAPPROVED INDICATION [None]
  - MYOCARDIAL INFARCTION [None]
  - SOCIAL AVOIDANT BEHAVIOUR [None]
  - MIDDLE INSOMNIA [None]
  - INSOMNIA [None]
  - STRESS [None]
  - IMPAIRED SELF-CARE [None]
  - WEIGHT INCREASED [None]
  - INCORRECT DOSE ADMINISTERED [None]
